FAERS Safety Report 8642823 (Version 2)
Quarter: 2013Q1

REPORT INFORMATION
  Report Type: Spontaneous
  Country: BR (occurrence: BR)
  Receive Date: 20120629
  Receipt Date: 20130122
  Transmission Date: 20140127
  Serious: Yes (Hospitalization, Other)
  Sender: FDA-Public Use
  Company Number: PHHY2012BR055201

PATIENT
  Sex: Female
  Weight: 114 kg

DRUGS (7)
  1. DIOVAN AMLO FIX [Suspect]
     Indication: HYPERTENSION
     Dosage: 1 DF (320/5MG) DAILY
     Route: 048
  2. ATENSINA [Concomitant]
     Indication: HYPERTENSION
     Dosage: 2 DF, DAILY
     Route: 048
     Dates: start: 201202
  3. CARVEDILOL [Concomitant]
     Indication: ARRHYTHMIA
     Dosage: 2 DF, DAILY
     Route: 048
  4. SUSTRATE [Concomitant]
     Indication: ISCHAEMIC HEART DISEASE PROPHYLAXIS
     Dosage: 3 DF, DAILY
     Route: 048
     Dates: start: 201202
  5. LOSARTAN [Concomitant]
     Indication: HYPERTENSION
     Dosage: 1 DF, DAILY
     Route: 048
     Dates: start: 201202
  6. VASOGARD [Concomitant]
     Indication: CARDIOVASCULAR DISORDER
     Dosage: 2 DF, DAILY
     Route: 048
     Dates: start: 201207
  7. CAPILAREMA [Concomitant]
     Indication: PAIN
     Dosage: 2 DF, DAILY
     Route: 048
     Dates: start: 201212

REACTIONS (2)
  - Cardiac disorder [Recovered/Resolved]
  - Weight increased [Not Recovered/Not Resolved]
